FAERS Safety Report 5657870-9 (Version None)
Quarter: 2008Q1

REPORT INFORMATION
  Report Type: 
  Country: None (occurrence: None)
  Receive Date: 20080310
  Receipt Date: 20080303
  Transmission Date: 20080703
  Serious: Yes (Other)
  Sender: FDA-Public Use
  Company Number: PHNU2007DE04215

PATIENT
  Sex: Male

DRUGS (6)
  1. SANDIMMUNE [Suspect]
     Indication: RENAL TRANSPLANT
     Dosage: 200MG/DAY
  2. SANDIMMUNE [Suspect]
     Dosage: 175MG/DAY
  3. CELLCEPT [Concomitant]
     Dosage: 2G/DAY
     Route: 048
  4. LORZAAR [Concomitant]
  5. XANEF [Concomitant]
  6. DILATREND [Concomitant]

REACTIONS (6)
  - BLOOD CREATININE INCREASED [None]
  - HAEMOGLOBIN DECREASED [None]
  - HERPES ZOSTER [None]
  - HYPERTENSION [None]
  - MICROALBUMINURIA [None]
  - PROTEINURIA [None]
